FAERS Safety Report 8829230 (Version 1)
Quarter: 2012Q4

REPORT INFORMATION
  Report Type: 
  Country: US (occurrence: US)
  Receive Date: 20121008
  Receipt Date: 20121008
  Transmission Date: 20130627
  Serious: No
  Sender: FDA-Public Use
  Company Number: US-ASTRAZENECA-2012SE73933

PATIENT
  Age: 72 Year
  Sex: Male
  Weight: 95.3 kg

DRUGS (7)
  1. SYMBICORT [Suspect]
     Indication: ASTHMA
     Dosage: 160/ 4.5 MCG, TWO TIMES A DAY
     Route: 055
     Dates: start: 20120906, end: 20120922
  2. METOPROLOL [Suspect]
     Indication: CARDIAC DISORDER
     Route: 048
  3. TARAZOSIN [Concomitant]
     Indication: CARDIAC DISORDER
     Route: 048
  4. FISH OIL [Concomitant]
     Indication: CARDIAC DISORDER
     Route: 048
  5. OCCUVITE [Concomitant]
     Indication: PROPHYLAXIS
     Route: 048
  6. ASPIRIN [Concomitant]
     Indication: CARDIAC DISORDER
     Route: 048
  7. FUROSAMIDE [Concomitant]
     Indication: CARDIAC DISORDER
     Route: 048

REACTIONS (5)
  - Respiratory disorder [Unknown]
  - Cough [Unknown]
  - Retching [Unknown]
  - Drug dose omission [Unknown]
  - Off label use [Unknown]
